FAERS Safety Report 15061191 (Version 2)
Quarter: 2019Q3

REPORT INFORMATION
  Report Type: Spontaneous
  Country: US (occurrence: US)
  Receive Date: 20180625
  Receipt Date: 20190702
  Transmission Date: 20191004
  Serious: No
  Sender: FDA-Public Use
  Company Number: US-ROCHE-2076846

PATIENT
  Sex: Female
  Weight: 124 kg

DRUGS (1)
  1. XELODA [Suspect]
     Active Substance: CAPECITABINE
     Indication: BREAST CANCER
     Dosage: EVERY OTHER WEEKS
     Route: 048
     Dates: start: 20180124

REACTIONS (2)
  - Malaise [Unknown]
  - Dyspepsia [Recovered/Resolved]
